FAERS Safety Report 7561152-8 (Version None)
Quarter: 2011Q2

REPORT INFORMATION
  Report Type: 
  Country: None (occurrence: None)
  Receive Date: 20110621
  Receipt Date: 20110222
  Transmission Date: 20111010
  Serious: No
  Sender: FDA-Public Use
  Company Number: US-ASTRAZENECA-2011SE04408

PATIENT
  Age: 69 Year
  Sex: Female
  Weight: 72.6 kg

DRUGS (25)
  1. CENTRUM SILVER [Concomitant]
  2. LIPITOR [Concomitant]
  3. MINERAL SUPPLEMENT [Concomitant]
  4. SYMBICORT [Suspect]
     Indication: ASTHMA
     Dosage: 2 PUFFS TWO TIMES A DAY
     Route: 055
     Dates: start: 20100526, end: 20100601
  5. VITAMIN D [Concomitant]
  6. CITRACAL [Concomitant]
  7. SYMBICORT [Suspect]
     Indication: CHRONIC OBSTRUCTIVE PULMONARY DISEASE
     Dosage: 2 PUFFS TWO TIMES A DAY
     Route: 055
     Dates: start: 20100526, end: 20100601
  8. SINGULAIR [Concomitant]
  9. CLARITIN [Concomitant]
  10. PULMICORT [Suspect]
     Indication: ASTHMA
     Dosage: 180 MCG, ONE PUFF TWO TIMES A DAY
     Route: 055
     Dates: start: 20110120, end: 20110122
  11. PULMICORT [Suspect]
     Dosage: ONE RESPULE, DAILY
     Route: 055
     Dates: start: 20101201, end: 20110101
  12. NYSTATIN [Concomitant]
     Route: 048
  13. HYDROCHLOROTHIAZIDE [Concomitant]
  14. PRILOSEC [Concomitant]
  15. CALCIUM WITH D3 [Concomitant]
  16. CLOTRIMAZOLE [Concomitant]
  17. TYLENOL-500 [Concomitant]
  18. PULMICORT [Suspect]
     Dosage: ONE RESPULE, DAILY
     Route: 055
     Dates: start: 20101201, end: 20110101
  19. PULMICORT [Suspect]
     Dosage: ONE RESPULE, TWO TIMES A DAY
     Route: 055
     Dates: start: 20110101
  20. XANAX [Concomitant]
  21. ALBUTEROL SULFATE AUTOHALER [Concomitant]
  22. PULMICORT [Suspect]
     Dosage: ONE RESPULE, TWO TIMES A DAY
     Route: 055
     Dates: start: 20110101
  23. AMLODIPINE [Concomitant]
  24. ACIDOPHILUS [Concomitant]
  25. PULMICORT [Suspect]
     Indication: CHRONIC OBSTRUCTIVE PULMONARY DISEASE
     Dosage: 180 MCG, ONE PUFF TWO TIMES A DAY
     Route: 055
     Dates: start: 20110120, end: 20110122

REACTIONS (7)
  - CANDIDIASIS [None]
  - FUNGAL INFECTION [None]
  - OROPHARYNGEAL PAIN [None]
  - DRUG INEFFECTIVE [None]
  - WHEEZING [None]
  - GAIT DISTURBANCE [None]
  - FATIGUE [None]
